FAERS Safety Report 9021143 (Version 1)
Quarter: 2013Q1

REPORT INFORMATION
  Report Type: Spontaneous
  Country: US (occurrence: US)
  Receive Date: 20130119
  Receipt Date: 20130119
  Transmission Date: 20140127
  Serious: No
  Sender: FDA-Public Use
  Company Number: US-ALLERGAN-1203777US

PATIENT
  Age: 47 Year
  Sex: Female

DRUGS (4)
  1. BOTOX? [Suspect]
     Indication: MIGRAINE
     Dosage: 155 UNITS, SINGLE
     Route: 030
     Dates: start: 20120208, end: 20120208
  2. BOTOX? [Suspect]
     Dosage: UNK
     Route: 030
  3. ADDERALL [Concomitant]
     Indication: ATTENTION DEFICIT/HYPERACTIVITY DISORDER
     Dosage: 20 MG, QD
     Dates: start: 2011
  4. IUD WITH HORMONES [Concomitant]
     Indication: CONTRACEPTION

REACTIONS (7)
  - Aura [Unknown]
  - Aura [Unknown]
  - VIIth nerve paralysis [Unknown]
  - Drug ineffective [Unknown]
  - Nausea [Unknown]
  - Nausea [Unknown]
  - Headache [Unknown]
